FAERS Safety Report 14967358 (Version 7)
Quarter: 2018Q3

REPORT INFORMATION
  Report Type: Report from Study
  Country: ES (occurrence: ES)
  Receive Date: 20180604
  Receipt Date: 20180725
  Transmission Date: 20181010
  Serious: Yes (Hospitalization)
  Sender: FDA-Public Use
  Company Number: ES-ROCHE-2123839

PATIENT
  Age: 44 Year
  Sex: Female
  Weight: 64.5 kg

DRUGS (25)
  1. POLARAMINE [Concomitant]
     Active Substance: DEXCHLORPHENIRAMINE MALEATE
     Dosage: NEXT DOSES RECEIVED ON: 27/MAR/2013 (WEEK 2), 21/AUG/2013 (WEEK 24), 05/FEB/2014 (WEEK 48), 25/JUL/2
     Route: 065
     Dates: start: 20130308
  2. GABAPENTINE [Concomitant]
     Active Substance: GABAPENTIN
     Indication: NEURALGIA
     Route: 065
     Dates: start: 20141014
  3. YURELAX [Concomitant]
     Active Substance: CYCLOBENZAPRINE HYDROCHLORIDE
     Route: 065
     Dates: start: 20140213
  4. DICLOFENACO [Concomitant]
     Active Substance: DICLOFENAC
     Indication: BACK PAIN
     Route: 065
     Dates: start: 20151130
  5. OCRELIZUMAB. [Suspect]
     Active Substance: OCRELIZUMAB
     Indication: RELAPSING-REMITTING MULTIPLE SCLEROSIS
     Dosage: ADMINISTERED ON DAY 1 AND 15 OF FIRST 24 WEEK CYCLE FOLLOWED BY DAY 1 OF EACH SUBSEQUENT 24 WEEK CYC
     Route: 042
     Dates: start: 201301, end: 2015
  6. TARGIN [Concomitant]
     Active Substance: NALOXONE HYDROCHLORIDE\OXYCODONE HYDROCHLORIDE
     Route: 065
  7. DICLOFENACO [Concomitant]
     Active Substance: DICLOFENAC
     Indication: BACK PAIN
     Route: 065
     Dates: start: 20131225, end: 20140102
  8. LEVOTHYROXINE. [Concomitant]
     Active Substance: LEVOTHYROXINE
     Route: 065
     Dates: start: 200602
  9. PARACETAMOL [Concomitant]
     Active Substance: ACETAMINOPHEN
     Indication: GASTROENTERITIS
     Dosage: NEXT DOSES RECEIVED ON: 27/MAR/2013 (WEEK 2), 21/AUG/2013 (WEEK 24), 05/FEB/2014 (WEEK 48), 25/JUL/2
     Route: 065
     Dates: start: 20130308
  10. PALMITOYLETHANOLAMIDE [Concomitant]
     Route: 065
     Dates: start: 20141014
  11. AMANTADINE. [Concomitant]
     Active Substance: AMANTADINE HYDROCHLORIDE
     Indication: FATIGUE
     Route: 065
     Dates: start: 20151123, end: 20160522
  12. OCRELIZUMAB. [Suspect]
     Active Substance: OCRELIZUMAB
     Indication: RELAPSING-REMITTING MULTIPLE SCLEROSIS
     Dosage: WEEK 0, CYCLE 5, DAY 1 OF FIRST 24 WEEK CYCLE FOLLOWED BY DAY 1 OF EACH SUBSEQUENT 24 WEEK CYCLE AS
     Route: 042
     Dates: start: 20150119, end: 20150119
  13. GABAPENTINE [Concomitant]
     Active Substance: GABAPENTIN
     Route: 065
     Dates: start: 20140428, end: 20141013
  14. YURELAX [Concomitant]
     Active Substance: CYCLOBENZAPRINE HYDROCHLORIDE
     Indication: MYALGIA
     Route: 065
     Dates: start: 20140205, end: 20140212
  15. PLACEBO [Suspect]
     Active Substance: UNSPECIFIED INGREDIENT
     Indication: RELAPSING-REMITTING MULTIPLE SCLEROSIS
     Route: 058
     Dates: start: 201301, end: 2015
  16. PARACETAMOL [Concomitant]
     Active Substance: ACETAMINOPHEN
     Route: 065
     Dates: start: 20130319, end: 20130323
  17. POLARAMINE [Concomitant]
     Active Substance: DEXCHLORPHENIRAMINE MALEATE
     Dosage: NEXT DOSES RECEIVED ON: 23/OCT/2017 (OLE?WEEK 144), 16/APR/2018 (OLE?WEEK 168)
     Route: 065
     Dates: start: 20150119
  18. METHYLPREDNISOLONE. [Concomitant]
     Active Substance: METHYLPREDNISOLONE
     Dosage: NEXT DOSES RECEIVED ON: 27/MAR/2013 (WEEK 2), 21/AUG/2013 (WEEK 24), 05/FEB/2014 (WEEK 48), 25/JUL/2
     Route: 065
     Dates: start: 20130308, end: 20130308
  19. ARCOXIA [Concomitant]
     Active Substance: ETORICOXIB
     Indication: OSTEOARTHRITIS
     Route: 065
     Dates: start: 20160325
  20. AMANTADINE. [Concomitant]
     Active Substance: AMANTADINE HYDROCHLORIDE
     Route: 065
     Dates: start: 20160523, end: 20160606
  21. AMANTADINE. [Concomitant]
     Active Substance: AMANTADINE HYDROCHLORIDE
     Route: 065
     Dates: start: 20160607
  22. IBUPROFEN. [Concomitant]
     Active Substance: IBUPROFEN
     Indication: GASTROENTERITIS
     Route: 065
     Dates: start: 20130319, end: 20130323
  23. EUTIROX [Concomitant]
     Active Substance: LEVOTHYROXINE SODIUM
     Indication: HYPOTHYROIDISM
     Route: 065
     Dates: start: 200602
  24. ACTOCORTINA [Concomitant]
     Active Substance: HYDROCORTISONE SODIUM PHOSPHATE
     Indication: INFUSION RELATED REACTION
     Route: 065
     Dates: start: 20180416, end: 20180416
  25. OMEPRAZOLE. [Concomitant]
     Active Substance: OMEPRAZOLE
     Route: 065

REACTIONS (1)
  - Chondrosarcoma [Recovered/Resolved with Sequelae]

NARRATIVE: CASE EVENT DATE: 20180228
